FAERS Safety Report 7900931-1 (Version None)
Quarter: 2011Q4

REPORT INFORMATION
  Report Type: 
  Country: None (occurrence: None)
  Receive Date: 20111104
  Receipt Date: 20111021
  Transmission Date: 20120403
  Serious: Yes (Life-Threatening, Hospitalization)
  Sender: FDA-Public Use
  Company Number: NGX_00594_2011

PATIENT
  Sex: Male

DRUGS (4)
  1. KALETRA [Concomitant]
  2. LYRICA [Concomitant]
  3. TRUVADA [Concomitant]
  4. QUTENZA [Suspect]
     Indication: POLYNEUROPATHY
     Dosage: (2 DF, [PATCH] TOPICAL)
     Route: 061
     Dates: start: 20110801, end: 20110801

REACTIONS (2)
  - GUILLAIN-BARRE SYNDROME [None]
  - ACUTE STRESS DISORDER [None]
